FAERS Safety Report 4314838-2 (Version None)
Quarter: 2004Q1

REPORT INFORMATION
  Report Type: 
  Country: None (occurrence: None)
  Receive Date: 20040308
  Receipt Date: 20040216
  Transmission Date: 20041129
  Serious: Yes (Hospitalization)
  Sender: FDA-Public Use
  Company Number: 2004-00100FE

PATIENT
  Age: 57 Year
  Sex: Male

DRUGS (2)
  1. PENTASA [Suspect]
     Dosage: 2250 MG
     Route: 048
  2. PREDNISOLONE [Concomitant]

REACTIONS (2)
  - EOSINOPHIL COUNT INCREASED [None]
  - PNEUMONIA [None]
